FAERS Safety Report 4873871-2 (Version None)
Quarter: 2006Q1

REPORT INFORMATION
  Report Type: 
  Country: None (occurrence: None)
  Receive Date: 20060104
  Receipt Date: 20051229
  Transmission Date: 20060701
  Serious: Yes (Hospitalization)
  Sender: FDA-Public Use
  Company Number: TAP2005Q02288

PATIENT
  Age: 34 Year
  Sex: Female
  Weight: 54.5 kg

DRUGS (3)
  1. LUPRON DEPOT-3 [Suspect]
     Indication: ABDOMINAL PAIN UPPER
     Dosage: 3.75 MG, 1 IN 1 M, INTRAMUSCULAR
     Route: 030
     Dates: start: 20051006
  2. VICODIN [Concomitant]
  3. NORETHINDRONE (NORETHISTERONE) [Concomitant]

REACTIONS (11)
  - ABASIA [None]
  - APHASIA [None]
  - BLOOD POTASSIUM DECREASED [None]
  - CHEST PAIN [None]
  - EYE PAIN [None]
  - HEADACHE [None]
  - HYPOAESTHESIA [None]
  - PAIN IN EXTREMITY [None]
  - PARAESTHESIA [None]
  - REFUSAL OF TREATMENT BY PATIENT [None]
  - VITAMIN B12 DECREASED [None]
